FAERS Safety Report 13162497 (Version 1)
Quarter: 2017Q1

REPORT INFORMATION
  Report Type: Spontaneous
  Country: US (occurrence: US)
  Receive Date: 20170125
  Receipt Date: 20170125
  Transmission Date: 20170428
  Serious: Yes (Other)
  Sender: FDA-Public Use
  Company Number: None

PATIENT
  Age: 73 Year
  Sex: Male
  Weight: 95.8 kg

DRUGS (9)
  1. LANSOPRAZOLE. [Concomitant]
     Active Substance: LANSOPRAZOLE
  2. LOSARTAN. [Concomitant]
     Active Substance: LOSARTAN
  3. RESMED AIRCURVE 10 [Concomitant]
  4. TEA USING LEMON ZEST AND FRESH GRATED GINGER [Concomitant]
  5. POTASSIUM CL [Suspect]
     Active Substance: POTASSIUM CHLORIDE
     Indication: DRUG THERAPY
     Dosage: ?          QUANTITY:1 TABLET(S);?
     Route: 048
     Dates: start: 20120102, end: 20170125
  6. PHILLIPS MASK [Concomitant]
  7. IRBESARTAN. [Concomitant]
     Active Substance: IRBESARTAN
  8. SYMBICORT [Concomitant]
     Active Substance: BUDESONIDE\FORMOTEROL FUMARATE DIHYDRATE
  9. CARVEDILOL. [Concomitant]
     Active Substance: CARVEDILOL

REACTIONS (6)
  - Thinking abnormal [None]
  - Dyspnoea [None]
  - Abdominal distension [None]
  - Wheezing [None]
  - Insomnia [None]
  - Depression [None]

NARRATIVE: CASE EVENT DATE: 20170125
